FAERS Safety Report 7907347-2 (Version None)
Quarter: 2011Q4

REPORT INFORMATION
  Report Type: 
  Country: None (occurrence: None)
  Receive Date: 20111110
  Receipt Date: 20111102
  Transmission Date: 20120403
  Serious: Yes (Life-Threatening, Hospitalization)
  Sender: FDA-Public Use
  Company Number: DK-GLAXOSMITHKLINE-B0761507A

PATIENT
  Sex: Female

DRUGS (4)
  1. MAGNYL [Concomitant]
     Dates: end: 20111030
  2. WARFARIN SODIUM [Concomitant]
  3. UNKNOWN DRUG [Concomitant]
  4. ARIXTRA [Suspect]
     Indication: ACUTE MYOCARDIAL INFARCTION
     Dosage: 2.5MG PER DAY
     Route: 058
     Dates: start: 20111026, end: 20111030

REACTIONS (5)
  - INTRA-ABDOMINAL HAEMORRHAGE [None]
  - ANURIA [None]
  - RECTAL HAEMORRHAGE [None]
  - HAEMOGLOBIN DECREASED [None]
  - RENAL DISORDER [None]
